FAERS Safety Report 4413201-3 (Version None)
Quarter: 2004Q3

REPORT INFORMATION
  Report Type: 
  Country: None (occurrence: None)
  Receive Date: 20040802
  Receipt Date: 20040802
  Transmission Date: 20050211
  Serious: Yes (Hospitalization)
  Sender: FDA-Public Use
  Company Number: None

PATIENT
  Age: 82 Year
  Sex: Male
  Weight: 96 kg

DRUGS (1)
  1. GATIFLOXACIN [Suspect]
     Indication: INFECTION
     Dosage: 400 MG Q DAY ORAL
     Route: 048
     Dates: start: 20040221, end: 20040229

REACTIONS (1)
  - DIARRHOEA [None]
